FAERS Safety Report 9198607 (Version 1)
Quarter: 2013Q1

REPORT INFORMATION
  Report Type: Spontaneous
  Country: GB (occurrence: GB)
  Receive Date: 20130329
  Receipt Date: 20130329
  Transmission Date: 20140127
  Serious: Yes (Other)
  Sender: FDA-Public Use
  Company Number: GB-AMGEN-GBRSP2013021840

PATIENT
  Age: 63 Year
  Sex: Female

DRUGS (1)
  1. ENBREL [Suspect]
     Indication: RHEUMATOID ARTHRITIS
     Dosage: 25 MG, UNK

REACTIONS (11)
  - Neurological symptom [Unknown]
  - Eye disorder [Unknown]
  - Lacrimation increased [Unknown]
  - Pain in extremity [Unknown]
  - Headache [Unknown]
  - Back pain [Unknown]
  - Neck pain [Unknown]
  - Gout [Unknown]
  - Herpes zoster [Unknown]
  - Guillain-Barre syndrome [Unknown]
  - Herpes zoster oticus [Unknown]
